FAERS Safety Report 9344604 (Version 1)
Quarter: 2013Q2

REPORT INFORMATION
  Report Type: Report from Study
  Country: US (occurrence: US)
  Receive Date: 20130612
  Receipt Date: 20130612
  Transmission Date: 20140414
  Serious: Yes (Hospitalization)
  Sender: FDA-Public Use
  Company Number: US-ACTELION-A-US2013-84138

PATIENT
  Age: 60 Year
  Sex: Female

DRUGS (2)
  1. VELETRI [Suspect]
     Indication: PULMONARY ARTERIAL HYPERTENSION
     Dosage: 71 NG/KG, PER MIN
     Route: 042
     Dates: start: 20121108
  2. COUMADIN [Concomitant]

REACTIONS (1)
  - Food intolerance [Unknown]
